FAERS Safety Report 5591270-5 (Version None)
Quarter: 2008Q1

REPORT INFORMATION
  Report Type: 
  Country: None (occurrence: None)
  Receive Date: 20080115
  Receipt Date: 20080104
  Transmission Date: 20080703
  Serious: Yes (Hospitalization)
  Sender: FDA-Public Use
  Company Number: ES-TYCO HEALTHCARE/MALLINCKRODT-T200800015

PATIENT

DRUGS (1)
  1. OPTIRAY 300 [Suspect]
     Dosage: 100 ML, SINGLE
     Route: 042
     Dates: start: 20070914, end: 20070914

REACTIONS (1)
  - BRONCHOSPASM [None]
